FAERS Safety Report 9839811 (Version 2)
Quarter: 2014Q2

REPORT INFORMATION
  Report Type: Report from Study
  Country: MX (occurrence: MX)
  Receive Date: 20140124
  Receipt Date: 20140422
  Transmission Date: 20141212
  Serious: Yes (Other)
  Sender: FDA-Public Use
  Company Number: MX-ROCHE-1337921

PATIENT
  Sex: Female

DRUGS (7)
  1. LUCENTIS [Suspect]
     Indication: EYE HAEMORRHAGE
     Dosage: DOSE:0.5 MG/0.05 ML EVERY 3-4 MONTHS
     Route: 050
     Dates: start: 201201
  2. LUCENTIS [Suspect]
     Indication: OFF LABEL USE
     Dosage: DOSE:0.5 MG/0.05 ML
     Route: 050
     Dates: start: 201311
  3. LUCENTIS [Suspect]
     Indication: DIABETES MELLITUS
  4. JANUVIA [Concomitant]
     Route: 065
     Dates: start: 201304
  5. ACARBOSE [Concomitant]
     Route: 065
     Dates: start: 201204
  6. METFORMIN [Concomitant]
     Route: 065
  7. INSULIN [Concomitant]

REACTIONS (5)
  - Eye haemorrhage [Not Recovered/Not Resolved]
  - Blindness [Not Recovered/Not Resolved]
  - Ocular discomfort [Not Recovered/Not Resolved]
  - Off label use [Unknown]
  - Drug ineffective [Unknown]
